FAERS Safety Report 9502237 (Version 1)
Quarter: 2013Q3

REPORT INFORMATION
  Report Type: Spontaneous
  Country: US (occurrence: US)
  Receive Date: 20130906
  Receipt Date: 20130906
  Transmission Date: 20140515
  Serious: No
  Sender: FDA-Public Use
  Company Number: US-009507513-1308USA010465

PATIENT
  Sex: Female

DRUGS (1)
  1. NUVARING [Suspect]
     Route: 067

REACTIONS (4)
  - Muscle tightness [Unknown]
  - Micturition urgency [Unknown]
  - Off label use [Unknown]
  - Incorrect drug administration duration [Unknown]
